FAERS Safety Report 11370022 (Version 1)
Quarter: 2015Q3

REPORT INFORMATION
  Report Type: Spontaneous
  Country: US (occurrence: US)
  Receive Date: 20150812
  Receipt Date: 20150812
  Transmission Date: 20151125
  Serious: No
  Sender: FDA-Public Use
  Company Number: US-JNJFOC-20150711252

PATIENT
  Age: 86 Year
  Sex: Male
  Weight: 83.46 kg

DRUGS (1)
  1. INVOKANA [Suspect]
     Active Substance: CANAGLIFLOZIN
     Indication: TYPE 2 DIABETES MELLITUS
     Route: 048
     Dates: start: 201506

REACTIONS (6)
  - Extrasystoles [Not Recovered/Not Resolved]
  - Asthenia [Unknown]
  - Genital infection fungal [Not Recovered/Not Resolved]
  - Vomiting [Unknown]
  - Abnormal loss of weight [Unknown]
  - Presyncope [Unknown]

NARRATIVE: CASE EVENT DATE: 201506
